FAERS Safety Report 8596629-X (Version None)
Quarter: 2012Q3

REPORT INFORMATION
  Report Type: 
  Country: None (occurrence: None)
  Receive Date: 20120815
  Receipt Date: 20120806
  Transmission Date: 20120928
  Serious: Yes (Other)
  Sender: FDA-Public Use
  Company Number: CHPA2012IT017809

PATIENT
  Sex: Male

DRUGS (9)
  1. ASPIRIN [Concomitant]
     Dosage: UNK, UNK
  2. MEDROL [Concomitant]
     Dosage: UNK, UNK
     Route: 048
  3. PURSENNID [Suspect]
     Indication: PROPHYLAXIS
     Dosage: 36 MG, ONCE/SINGLE
     Route: 048
     Dates: start: 20120614, end: 20120614
  4. LANSOPRAZOLE [Concomitant]
     Dosage: UNK, UNK
     Route: 048
  5. SEROQUEL [Concomitant]
     Dosage: UNK, UNK
     Route: 048
  6. FOLINA [Concomitant]
     Dosage: 10 MG, UNK
     Route: 048
  7. CALCIUM D SANDOZ [Concomitant]
     Dosage: UNK, UNK
  8. DISIPAL [Concomitant]
     Dosage: UNK, UNK
     Route: 048
  9. SINEMET [Concomitant]
     Dosage: 100MG+25MG TABLETS, UNK
     Route: 048

REACTIONS (1)
  - RASH [None]
